FAERS Safety Report 8789303 (Version 1)
Quarter: 2012Q4

REPORT INFORMATION
  Report Type: Spontaneous
  Country: US (occurrence: None)
  Receive Date: 20120905
  Receipt Date: 20120905
  Transmission Date: 20130627
  Serious: Yes (Hospitalization)
  Sender: FDA-Public Use
  Company Number: AXC-2012-000392

PATIENT
  Age: 27 Year
  Sex: Female

DRUGS (1)
  1. URSODEOXYCHOLIC ACID [Suspect]
     Indication: CHOLESTASIS OF PREGNANCY

REACTIONS (8)
  - Drug ineffective [None]
  - Pruritus [None]
  - Maternal exposure during pregnancy [None]
  - Insomnia [None]
  - Restlessness [None]
  - Suicidal ideation [None]
  - Premature delivery [None]
  - Caesarean section [None]
